FAERS Safety Report 4286661-9 (Version None)
Quarter: 2004Q1

REPORT INFORMATION
  Report Type: 
  Country: None (occurrence: None)
  Receive Date: 20040204
  Receipt Date: 20040119
  Transmission Date: 20041129
  Serious: Yes (Hospitalization)
  Sender: FDA-Public Use
  Company Number: 2002-04585

PATIENT
  Age: 37 Year
  Sex: Male

DRUGS (9)
  1. VIREAD [Suspect]
     Indication: HIV INFECTION
     Dosage: 300 MG QD PO
     Route: 048
     Dates: start: 20020208, end: 20020517
  2. AMBISOME [Suspect]
     Indication: OESOPHAGEAL CANDIDIASIS
     Dosage: 3 MG/KG QD IV
     Route: 042
     Dates: start: 20020515, end: 20020520
  3. ABACAVIR [Concomitant]
  4. DIDANOSINE [Concomitant]
  5. COTRIM [Concomitant]
  6. CIPROFLOXACIN [Concomitant]
  7. CLARITHROMYCIN [Concomitant]
  8. GANCICLOVIR [Concomitant]
  9. AMPHOTERICIN B [Concomitant]

REACTIONS (8)
  - BLOOD CREATINE PHOSPHOKINASE INCREASED [None]
  - DRUG INTERACTION [None]
  - HEPATITIS CHOLESTATIC [None]
  - LACTIC ACIDOSIS [None]
  - METABOLIC ACIDOSIS [None]
  - OESOPHAGEAL CANDIDIASIS [None]
  - OROPHARYNGEAL CANDIDIASIS [None]
  - PATHOGEN RESISTANCE [None]
